FAERS Safety Report 16529116 (Version 1)
Quarter: 2019Q3

REPORT INFORMATION
  Report Type: Spontaneous
  Country: US (occurrence: US)
  Receive Date: 20190704
  Receipt Date: 20190704
  Transmission Date: 20191004
  Serious: No
  Sender: FDA-Public Use
  Company Number: US-GW PHARMA-201905USGW1537

PATIENT

DRUGS (22)
  1. CYPROHEPTADIN [Concomitant]
     Active Substance: CYPROHEPTADINE HYDROCHLORIDE
     Indication: PRODUCT USED FOR UNKNOWN INDICATION
     Dosage: 2 MG/5ML, UNK
     Route: 065
     Dates: start: 20190220
  2. ADVAIR HFA [Concomitant]
     Active Substance: FLUTICASONE PROPIONATE\SALMETEROL XINAFOATE
     Dosage: AEROSOL 230/21, UNK
     Route: 065
     Dates: start: 20190218
  3. CYPROHEPTADIN [Concomitant]
     Active Substance: CYPROHEPTADINE HYDROCHLORIDE
     Dosage: 2 MG/5ML, UNK
     Route: 065
     Dates: start: 20190501
  4. POLYETHYLENE GLYCOL 3350. [Concomitant]
     Active Substance: POLYETHYLENE GLYCOL 3350
     Indication: PRODUCT USED FOR UNKNOWN INDICATION
     Dosage: POWDER 3350 NF
     Route: 065
     Dates: start: 20190329
  5. CLONAZEPAM. [Concomitant]
     Active Substance: CLONAZEPAM
     Indication: PRODUCT USED FOR UNKNOWN INDICATION
     Dosage: 0.25 MILLIGRAM, UNK
     Route: 065
     Dates: start: 20190513
  6. EPIDIOLEX [Suspect]
     Active Substance: CANNABIDIOL
     Indication: BRAIN MALFORMATION
     Dosage: 130 MILLIGRAM, BID
     Route: 048
     Dates: start: 20190118
  7. LEVOCETIRIZINE [Concomitant]
     Active Substance: LEVOCETIRIZINE
     Dosage: 2.5/5ML, SOLUTION, UNK
     Route: 065
     Dates: start: 20190505
  8. OXCARBAZEPIN [Concomitant]
     Active Substance: OXCARBAZEPINE
     Indication: PRODUCT USED FOR UNKNOWN INDICATION
     Dosage: 300MG/5ML, UNK
     Route: 065
     Dates: start: 20181211
  9. NASONEX [Concomitant]
     Active Substance: MOMETASONE FUROATE
     Indication: PRODUCT USED FOR UNKNOWN INDICATION
     Dosage: SPRAY, 50 MCG/ACT
     Route: 065
     Dates: start: 20190408
  10. NEXIUM [Concomitant]
     Active Substance: ESOMEPRAZOLE MAGNESIUM
     Indication: PRODUCT USED FOR UNKNOWN INDICATION
     Dosage: 10 MILLIGRAM, UNK
     Route: 065
     Dates: start: 20190130
  11. SODIUM CHLORIDE. [Concomitant]
     Active Substance: SODIUM CHLORIDE
     Indication: PRODUCT USED FOR UNKNOWN INDICATION
     Dosage: NEBULIZER, 3 %, UNK
     Dates: start: 20190430
  12. ONFI [Concomitant]
     Active Substance: CLOBAZAM
     Indication: PRODUCT USED FOR UNKNOWN INDICATION
     Dosage: 2.5 MG/ML, UNK
     Route: 065
     Dates: start: 20190114
  13. FLUCONAZOLE. [Concomitant]
     Active Substance: FLUCONAZOLE
     Indication: PRODUCT USED FOR UNKNOWN INDICATION
     Dosage: 10MG/ML, UNK
     Route: 065
     Dates: start: 20110312
  14. LEVALBUTEROL [LEVOSALBUTAMOL] [Concomitant]
     Active Substance: LEVALBUTEROL
     Dosage: NEBULIZER, 0.83 MILLIGRAM, UNK
     Dates: start: 20190130
  15. CYPROHEPTADIN [Concomitant]
     Active Substance: CYPROHEPTADINE HYDROCHLORIDE
     Dosage: 2 MG/5ML, UNK
     Route: 065
     Dates: start: 20190503
  16. METHYLPRED [Concomitant]
     Active Substance: METHYLPREDNISOLONE
     Indication: PRODUCT USED FOR UNKNOWN INDICATION
     Dosage: 4 MILLIGRAM, UNK
     Route: 065
     Dates: start: 20190513
  17. BETHKIS [Concomitant]
     Active Substance: TOBRAMYCIN
     Indication: PRODUCT USED FOR UNKNOWN INDICATION
     Dosage: NEBULIZER, 300/4ML, UNK
     Dates: start: 20181003
  18. LEVALBUTEROL [LEVOSALBUTAMOL] [Concomitant]
     Active Substance: LEVALBUTEROL
     Indication: PRODUCT USED FOR UNKNOWN INDICATION
     Dosage: 0.83 MILLIGRAM, UNK
     Dates: start: 20190429
  19. LEVOCETIRIZINE [Concomitant]
     Active Substance: LEVOCETIRIZINE
     Indication: PRODUCT USED FOR UNKNOWN INDICATION
     Dosage: 2.5/5ML, SOLUTION, UNK
     Route: 065
     Dates: start: 20190318
  20. NASONEX [Concomitant]
     Active Substance: MOMETASONE FUROATE
     Dosage: SPRAY, 50 MCG/ACT
     Route: 065
     Dates: start: 20190501
  21. ADVAIR HFA [Concomitant]
     Active Substance: FLUTICASONE PROPIONATE\SALMETEROL XINAFOATE
     Indication: PRODUCT USED FOR UNKNOWN INDICATION
     Dosage: AEROSOL 230/21, UNK
     Route: 065
     Dates: start: 20190515
  22. TOPIRAMATE. [Concomitant]
     Active Substance: TOPIRAMATE
     Indication: PRODUCT USED FOR UNKNOWN INDICATION
     Dosage: 100 MILLIGRAM, UNK
     Route: 065
     Dates: start: 20190419

REACTIONS (2)
  - Off label use [Not Recovered/Not Resolved]
  - Fatigue [Not Recovered/Not Resolved]

NARRATIVE: CASE EVENT DATE: 2019
